FAERS Safety Report 7791992-1 (Version None)
Quarter: 2011Q3

REPORT INFORMATION
  Report Type: 
  Country: None (occurrence: None)
  Receive Date: 20110930
  Receipt Date: 20110930
  Transmission Date: 20111222
  Serious: Yes (Hospitalization)
  Sender: FDA-Public Use
  Company Number: None

PATIENT
  Sex: Female
  Weight: 58.2 kg

DRUGS (2)
  1. INCIVEK [Suspect]
     Indication: HEPATITIS C
     Dosage: 375MG 2 TABS TID PO
     Route: 048
     Dates: start: 20110721
  2. PEGASYS [Suspect]
     Indication: HEPATITIS C
     Dosage: 180MCG 1 X WEEK SUBQ
     Route: 058
     Dates: start: 20110721

REACTIONS (2)
  - ANAEMIA [None]
  - VAGINAL HAEMORRHAGE [None]
